FAERS Safety Report 22933845 (Version 2)
Quarter: 2024Q3

REPORT INFORMATION
  Report Type: Spontaneous
  Country: US (occurrence: None)
  Receive Date: 20230912
  Receipt Date: 20240906
  Transmission Date: 20241017
  Serious: No
  Sender: DOMPE FARMACEUTICI
  Company Number: US-FARMAPROD-202303-0837

PATIENT
  Sex: Male

DRUGS (7)
  1. OXERVATE [Suspect]
     Active Substance: CENEGERMIN-BKBJ
     Indication: Neurotrophic keratopathy
     Route: 047
     Dates: start: 20230306
  2. VITAMIN C [Concomitant]
     Active Substance: ASCORBIC ACID
  3. PREDNISOLONE-NEPAFENAC [Concomitant]
  4. VITAMINS [Concomitant]
     Active Substance: VITAMINS
  5. NIACIN [Concomitant]
     Active Substance: NIACIN
  6. ATORVASTATIN CALCIUM [Concomitant]
     Active Substance: ATORVASTATIN CALCIUM
  7. LOSARTAN POTASSIUM [Concomitant]
     Active Substance: LOSARTAN POTASSIUM

REACTIONS (5)
  - Eye pain [Not Recovered/Not Resolved]
  - Product administration error [Unknown]
  - Device use issue [Unknown]
  - Accidental overdose [Unknown]
  - Vision blurred [Unknown]
